FAERS Safety Report 16707149 (Version 1)
Quarter: 2019Q3

REPORT INFORMATION
  Report Type: Spontaneous
  Country: US (occurrence: US)
  Receive Date: 20190815
  Receipt Date: 20190815
  Transmission Date: 20191004
  Serious: No
  Sender: FDA-Public Use
  Company Number: US-LNK INTERNATIONAL, INC.-2073190

PATIENT
  Sex: Female

DRUGS (1)
  1. NAPROXEN SODIUM 220MG FILM COATED BLUE CAPLETS [Suspect]
     Active Substance: NAPROXEN SODIUM
     Indication: ARTHRALGIA

REACTIONS (2)
  - Tremor [None]
  - Flushing [None]
